FAERS Safety Report 8125452-5 (Version None)
Quarter: 2012Q1

REPORT INFORMATION
  Report Type: 
  Country: None (occurrence: None)
  Receive Date: 20120209
  Receipt Date: 20120125
  Transmission Date: 20120608
  Serious: Yes (Hospitalization, Congenital Anomaly)
  Sender: FDA-Public Use
  Company Number: DE-ARROW GEN-2012-01181

PATIENT
  Sex: Male
  Weight: 3.96 kg

DRUGS (4)
  1. XIPAMIDE [Suspect]
     Indication: OEDEMA
     Dosage: 10 MG, DAILY
     Route: 064
     Dates: start: 20110115, end: 20110415
  2. RAMIPRIL [Suspect]
     Indication: HYPERTENSION
     Dosage: 2.5 MG, DAILY
     Route: 064
     Dates: start: 20101228, end: 20110315
  3. FOLIC ACID [Concomitant]
     Indication: VITAMIN SUPPLEMENTATION
     Dosage: 0.4 MG, DAILY
     Route: 064
     Dates: start: 20110505, end: 20110505
  4. AVELOX [Concomitant]
     Indication: NASOPHARYNGITIS
     Dosage: UNK
     Route: 064
     Dates: start: 20110201, end: 20110228

REACTIONS (1)
  - FALLOT'S TETRALOGY [None]
